FAERS Safety Report 6303312-X (Version None)
Quarter: 2009Q3

REPORT INFORMATION
  Report Type: 
  Country: None (occurrence: None)
  Receive Date: 20090810
  Receipt Date: 20090429
  Transmission Date: 20100115
  Serious: No
  Sender: FDA-Public Use
  Company Number: A0781311A

PATIENT
  Sex: Female

DRUGS (2)
  1. TREXIMET [Suspect]
     Indication: MIGRAINE
     Route: 048
     Dates: start: 20090429
  2. UNKNOWN [Concomitant]

REACTIONS (3)
  - ADVERSE EVENT [None]
  - ASTHENIA [None]
  - DIZZINESS [None]
